FAERS Safety Report 5563916-9 (Version None)
Quarter: 2007Q4

REPORT INFORMATION
  Report Type: 
  Country: None (occurrence: None)
  Receive Date: 20071217
  Receipt Date: 20071018
  Transmission Date: 20080405
  Serious: Yes (Other)
  Sender: FDA-Public Use
  Company Number: US-ASTRAZENECA-2007UW22866

PATIENT
  Age: 55 Year
  Sex: Male
  Weight: 72.6 kg

DRUGS (4)
  1. CRESTOR [Suspect]
     Indication: BLOOD CHOLESTEROL INCREASED
     Route: 048
     Dates: start: 20070901
  2. XANAX [Concomitant]
  3. NARDIL [Concomitant]
  4. ASPIRIN [Concomitant]

REACTIONS (5)
  - ANXIETY [None]
  - COUGH [None]
  - INCREASED UPPER AIRWAY SECRETION [None]
  - MYALGIA [None]
  - PANCREATITIS [None]
